FAERS Safety Report 5055252-4 (Version None)
Quarter: 2006Q3

REPORT INFORMATION
  Report Type: 
  Country: None (occurrence: None)
  Receive Date: 20060719
  Receipt Date: 20060710
  Transmission Date: 20061208
  Serious: Yes (Other)
  Sender: FDA-Public Use
  Company Number: ES-BRISTOL-MYERS SQUIBB COMPANY-13437165

PATIENT
  Age: 63 Year
  Sex: Female

DRUGS (7)
  1. ORENCIA [Suspect]
     Indication: RHEUMATOID ARTHRITIS
     Route: 042
     Dates: start: 20060502
  2. METHOTREXATE [Concomitant]
     Dates: start: 20010308
  3. OMEPRAZOLE [Concomitant]
     Dates: start: 19910101
  4. SIMVASTATIN [Concomitant]
     Dates: start: 19960101
  5. IRBESARTAN [Concomitant]
     Dates: start: 20030101
  6. LEVOTHYROXINE SODIUM [Concomitant]
     Dates: start: 20030101
  7. FOLINIC ACID [Concomitant]
     Dates: start: 20010308

REACTIONS (1)
  - GASTROINTESTINAL HAEMORRHAGE [None]
